FAERS Safety Report 5727869-2 (Version None)
Quarter: 2008Q2

REPORT INFORMATION
  Report Type: 
  Country: None (occurrence: None)
  Receive Date: 20080429
  Receipt Date: 20070911
  Transmission Date: 20081010
  Serious: Yes (Other)
  Sender: FDA-Public Use
  Company Number: 018482

PATIENT
  Sex: Female

DRUGS (2)
  1. CENESTIN [Suspect]
     Dosage: ORAL
     Route: 048
     Dates: start: 19750101, end: 20030701
  2. PREMARIN [Suspect]
     Dosage: ORAL
     Route: 048
     Dates: start: 19750101, end: 20030701

REACTIONS (1)
  - OVARIAN CANCER [None]
